FAERS Safety Report 9687085 (Version 2)
Quarter: 2013Q4

REPORT INFORMATION
  Report Type: Spontaneous
  Country: US (occurrence: US)
  Receive Date: 20131113
  Receipt Date: 20131113
  Transmission Date: 20140711
  Serious: Yes (Other)
  Sender: FDA-Public Use
  Company Number: US-LUNDBECK-DKLU1094764

PATIENT
  Age: 1 Year
  Sex: Female
  Weight: 9.48 kg

DRUGS (3)
  1. SABRIL (TABLET) [Suspect]
     Indication: INFANTILE SPASMS
     Route: 048
     Dates: start: 20121123
  2. SABRIL (TABLET) [Suspect]
     Route: 048
     Dates: start: 20121123
  3. PHENOBARBITAL [Concomitant]
     Indication: PRODUCT USED FOR UNKNOWN INDICATION

REACTIONS (3)
  - Retinogram abnormal [Unknown]
  - Visual impairment [Unknown]
  - Drug dose omission [Unknown]
